FAERS Safety Report 6673982-5 (Version None)
Quarter: 2010Q2

REPORT INFORMATION
  Report Type: 
  Country: None (occurrence: None)
  Receive Date: 20100409
  Receipt Date: 20100403
  Transmission Date: 20101027
  Serious: Yes (Other)
  Sender: FDA-Public Use
  Company Number: US-RB-006549-10

PATIENT
  Sex: Female

DRUGS (1)
  1. MUCINEX DM [Suspect]
     Dosage: TAKEN PRODUCT ON AND OFF FOR THE PAST 3 TO 4 DAYS,
     Route: 048
     Dates: start: 20100101

REACTIONS (2)
  - EXPIRED DRUG ADMINISTERED [None]
  - PSYCHOMOTOR HYPERACTIVITY [None]
